FAERS Safety Report 12238997 (Version 7)
Quarter: 2017Q4

REPORT INFORMATION
  Report Type: Spontaneous
  Country: US (occurrence: US)
  Receive Date: 20160405
  Receipt Date: 20171121
  Transmission Date: 20180320
  Serious: No
  Sender: FDA-Public Use
  Company Number: US-ACTELION PHARMACEUTICALS US, INC.-A-NJ2016-133284

PATIENT
  Age: 67 Year
  Sex: Female
  Weight: 141.5 kg

DRUGS (6)
  1. ADEMPAS [Suspect]
     Active Substance: RIOCIGUAT
     Indication: PRODUCT USED FOR UNKNOWN INDICATION
     Route: 065
  2. XARELTO [Concomitant]
     Active Substance: RIVAROXABAN
  3. SILDENAFIL. [Concomitant]
     Active Substance: SILDENAFIL
  4. OXYGEN. [Concomitant]
     Active Substance: OXYGEN
     Dosage: 4.5 L, UNK
  5. OPSUMIT [Suspect]
     Active Substance: MACITENTAN
     Indication: PULMONARY HYPERTENSION
     Dosage: 10 MG, QD
     Route: 048
  6. OXYGEN. [Concomitant]
     Active Substance: OXYGEN
     Dosage: 3 L, UNK

REACTIONS (22)
  - Sleep disorder [Unknown]
  - Unevaluable event [Unknown]
  - Weight increased [Unknown]
  - Insomnia [Unknown]
  - Dyspnoea [Not Recovered/Not Resolved]
  - Somnolence [Unknown]
  - Chest discomfort [Unknown]
  - Oxygen saturation decreased [Not Recovered/Not Resolved]
  - Peripheral swelling [Unknown]
  - Abnormal dreams [Unknown]
  - Fatigue [Unknown]
  - Anxiety [Unknown]
  - Arthralgia [Unknown]
  - Dyspnoea exertional [Unknown]
  - Malaise [Unknown]
  - Mental impairment [Unknown]
  - Initial insomnia [Unknown]
  - Nausea [Recovered/Resolved]
  - Headache [Unknown]
  - Abdominal discomfort [Unknown]
  - Visual impairment [Unknown]
  - Feeling abnormal [Unknown]

NARRATIVE: CASE EVENT DATE: 20171022
